FAERS Safety Report 12099976 (Version 1)
Quarter: 2016Q1

REPORT INFORMATION
  Report Type: Spontaneous
  Country: US (occurrence: US)
  Receive Date: 20160222
  Receipt Date: 20160222
  Transmission Date: 20160526
  Serious: Yes (Other)
  Sender: FDA-Public Use
  Company Number: US-SA-2016SA030726

PATIENT
  Age: 71 Year
  Sex: Female

DRUGS (1)
  1. ALLEGRA-D [Suspect]
     Active Substance: FEXOFENADINE\PSEUDOEPHEDRINE
     Indication: MULTIPLE ALLERGIES
     Dosage: PRODUCT START DATE2 YEARS?DOSES 180MG/240MG
     Route: 048

REACTIONS (2)
  - Extra dose administered [Unknown]
  - Dyspnoea [Unknown]
